FAERS Safety Report 25941553 (Version 1)
Quarter: 2025Q4

REPORT INFORMATION
  Report Type: Spontaneous
  Country: US (occurrence: US)
  Receive Date: 20251020
  Receipt Date: 20251020
  Transmission Date: 20260119
  Serious: No
  Sender: ALNYLAM PHARMACEUTICALS
  Company Number: US-ALNYLAM PHARMACEUTICALS, INC.-ALN-2025-006351

PATIENT

DRUGS (3)
  1. AMVUTTRA [Suspect]
     Active Substance: VUTRISIRAN
     Indication: Product used for unknown indication
     Dosage: UNK
     Route: 065
  2. AMVUTTRA [Suspect]
     Active Substance: VUTRISIRAN
     Dosage: UNK
     Route: 065
  3. VITAMIN A [Concomitant]
     Active Substance: VITAMIN A
     Indication: Supplementation therapy
     Dosage: 9000 MICROGRAM, QD (FOR APPROX. 80 DAYS)
     Route: 065

REACTIONS (2)
  - Headache [Unknown]
  - Blood alkaline phosphatase increased [Unknown]
